FAERS Safety Report 11753619 (Version 3)
Quarter: 2017Q4

REPORT INFORMATION
  Report Type: Report from Study
  Country: IT (occurrence: IT)
  Receive Date: 20151119
  Receipt Date: 20171114
  Transmission Date: 20180320
  Serious: Yes (Other)
  Sender: FDA-Public Use
  Company Number: PHHY2013IT101775

PATIENT
  Age: 52 Year
  Sex: Female

DRUGS (1)
  1. GILENYA [Suspect]
     Active Substance: FINGOLIMOD HYDROCHLORIDE
     Indication: MULTIPLE SCLEROSIS
     Dosage: 0.5 MG, QD
     Route: 048
     Dates: start: 20130612

REACTIONS (8)
  - Drug eruption [Recovered/Resolved]
  - Pain [Recovered/Resolved]
  - Alanine aminotransferase increased [Unknown]
  - Leukopenia [Unknown]
  - Rash papular [Recovered/Resolved]
  - Rash vesicular [Recovered/Resolved]
  - Alopecia [Recovered/Resolved]
  - Rash [Recovered/Resolved]

NARRATIVE: CASE EVENT DATE: 20130613
